FAERS Safety Report 17649252 (Version 2)
Quarter: 2020Q3

REPORT INFORMATION
  Report Type: Spontaneous
  Country: JP (occurrence: JP)
  Receive Date: 20200409
  Receipt Date: 20200703
  Transmission Date: 20201102
  Serious: Yes (Hospitalization)
  Sender: FDA-Public Use
  Company Number: JP-ROCHE-2575427

PATIENT
  Age: 77 Year
  Sex: Female
  Weight: 43 kg

DRUGS (4)
  1. ALFACALCIDOL [Concomitant]
     Active Substance: ALFACALCIDOL
     Route: 065
     Dates: start: 20181201, end: 20190518
  2. WARKMIN [Concomitant]
     Active Substance: ALFACALCIDOL
     Route: 065
     Dates: start: 20170222, end: 20180101
  3. BONVIVA [Suspect]
     Active Substance: IBANDRONATE SODIUM
     Indication: OSTEOPOROSIS POSTMENOPAUSAL
     Route: 048
     Dates: start: 20170222, end: 20190518
  4. SUMILU [Concomitant]
     Active Substance: FELBINAC
     Route: 065
     Dates: start: 20170222, end: 20171101

REACTIONS (1)
  - Altered state of consciousness [Unknown]

NARRATIVE: CASE EVENT DATE: 20190520
